FAERS Safety Report 5198696-2 (Version None)
Quarter: 2007Q1

REPORT INFORMATION
  Report Type: 
  Country: None (occurrence: None)
  Receive Date: 20070104
  Receipt Date: 20061228
  Transmission Date: 20070707
  Serious: Yes (Other)
  Sender: FDA-Public Use
  Company Number: 2006UW28666

PATIENT
  Sex: Male
  Weight: 122.5 kg

DRUGS (5)
  1. SEROQUEL [Suspect]
     Indication: INSOMNIA
     Route: 048
     Dates: end: 20061221
  2. SEROQUEL [Suspect]
     Indication: ANXIETY
     Route: 048
     Dates: end: 20061221
  3. LEXAPRO [Concomitant]
  4. LOTREL [Concomitant]
  5. ACTOS [Concomitant]

REACTIONS (5)
  - COUGH [None]
  - LIMB INJURY [None]
  - MYOCARDIAL INFARCTION [None]
  - THROMBOSIS [None]
  - VENOUS THROMBOSIS LIMB [None]
